FAERS Safety Report 7552627-6 (Version None)
Quarter: 2011Q2

REPORT INFORMATION
  Report Type: 
  Country: None (occurrence: None)
  Receive Date: 20110616
  Receipt Date: 20110603
  Transmission Date: 20111010
  Serious: Yes (Other)
  Sender: FDA-Public Use
  Company Number: US-UCBSA-034074

PATIENT
  Sex: Female

DRUGS (12)
  1. CIMZIA [Suspect]
     Indication: RHEUMATOID ARTHRITIS
     Dosage: ONCE USED
     Route: 058
     Dates: start: 20110521, end: 20110521
  2. BISOPROLOL FUMARATE [Concomitant]
  3. METHOTREXATE [Concomitant]
  4. OMEPRAZOLE [Concomitant]
  5. CORTISONE [Concomitant]
     Dosage: 50 MG
     Route: 048
     Dates: start: 20110523, end: 20110524
  6. SIMVASTATIN [Concomitant]
  7. ARAVA [Concomitant]
  8. CORTISONE [Concomitant]
     Indication: DYSPNOEA
     Dosage: 100 MG
     Route: 048
     Dates: start: 20110522, end: 20110522
  9. CORTISONE [Concomitant]
     Dosage: 20 MG
     Route: 048
     Dates: start: 20110524, end: 20110501
  10. CORTISONE [Concomitant]
     Dosage: DOSE REDUCED,20 MG,
     Route: 048
     Dates: start: 20110501
  11. FOLIC ACID [Concomitant]
  12. ATACAND [Concomitant]

REACTIONS (13)
  - ARTHRALGIA [None]
  - VOMITING [None]
  - SENSATION OF PRESSURE [None]
  - PHOTOPHOBIA [None]
  - MUSCULOSKELETAL STIFFNESS [None]
  - OCULAR HYPERAEMIA [None]
  - INFLUENZA LIKE ILLNESS [None]
  - URTICARIA [None]
  - DYSPNOEA [None]
  - RASH GENERALISED [None]
  - PAIN IN EXTREMITY [None]
  - EYE IRRITATION [None]
  - HYPOTONIA [None]
